FAERS Safety Report 7626942-1 (Version None)
Quarter: 2011Q3

REPORT INFORMATION
  Report Type: 
  Country: None (occurrence: None)
  Receive Date: 20110714
  Receipt Date: 20110629
  Transmission Date: 20111222
  Serious: Yes (Other)
  Sender: FDA-Public Use
  Company Number: TPA2011A03661

PATIENT
  Age: 70 Year
  Sex: Female
  Weight: 65.7716 kg

DRUGS (2)
  1. DEXILANT [Suspect]
     Indication: GASTROOESOPHAGEAL REFLUX DISEASE
     Dosage: 60 MG, 1 IN 1 D, ORAL
     Route: 048
     Dates: start: 20110615, end: 20110625
  2. DEXILANT [Suspect]
     Indication: GASTROOESOPHAGEAL REFLUX DISEASE
     Dosage: 60 MG, 1 IN 1 D, ORAL
     Route: 048
     Dates: start: 20110627, end: 20110628

REACTIONS (9)
  - HEADACHE [None]
  - MUSCULAR WEAKNESS [None]
  - ARTHRALGIA [None]
  - NECK PAIN [None]
  - NAUSEA [None]
  - MUSCLE SPASMS [None]
  - ABASIA [None]
  - EYE PAIN [None]
  - JOINT STIFFNESS [None]
